FAERS Safety Report 13425249 (Version 2)
Quarter: 2017Q2

REPORT INFORMATION
  Report Type: Spontaneous
  Country: US (occurrence: US)
  Receive Date: 20170411
  Receipt Date: 20170623
  Transmission Date: 20170830
  Serious: Yes (Other)
  Sender: FDA-Public Use
  Company Number: US-BRISTOL-MYERS SQUIBB COMPANY-BMS-2017-030883

PATIENT
  Age: 58 Year
  Sex: Male
  Weight: 96.16 kg

DRUGS (1)
  1. ELIQUIS [Suspect]
     Active Substance: APIXABAN
     Indication: CEREBROVASCULAR ACCIDENT PROPHYLAXIS
     Dosage: 5 MG, BID
     Route: 065
     Dates: start: 20161228, end: 201703

REACTIONS (2)
  - Arthralgia [Recovering/Resolving]
  - High frequency ablation [Unknown]

NARRATIVE: CASE EVENT DATE: 20161229
